FAERS Safety Report 6871869-6 (Version None)
Quarter: 2010Q3

REPORT INFORMATION
  Report Type: 
  Country: None (occurrence: None)
  Receive Date: 20100723
  Receipt Date: 20100716
  Transmission Date: 20110219
  Serious: Yes (Other)
  Sender: FDA-Public Use
  Company Number: KR-PFIZER INC-2010088883

PATIENT
  Sex: Female

DRUGS (2)
  1. PROVERA [Suspect]
     Indication: OFF LABEL USE
     Dosage: 10 MG, 1X/DAY
     Route: 048
     Dates: start: 20100510
  2. PROVERA [Suspect]
     Indication: ADENOMA BENIGN

REACTIONS (2)
  - MENORRHAGIA [None]
  - VAGINAL HAEMORRHAGE [None]
